FAERS Safety Report 9476575 (Version 1)
Quarter: 2013Q3

REPORT INFORMATION
  Report Type: Spontaneous
  Country: US (occurrence: None)
  Receive Date: 20130823
  Receipt Date: 20130823
  Transmission Date: 20140515
  Serious: No
  Sender: FDA-Public Use
  Company Number: None

PATIENT
  Age: 47 Year
  Sex: Female
  Weight: 81.19 kg

DRUGS (1)
  1. NITROFURANTOIN MACROCRYSTALLINE [Suspect]
     Indication: URINARY TRACT INFECTION
     Dosage: 1 PILL TWICE DAILY TAKEN BY MOUTH
     Route: 048
     Dates: start: 20130820, end: 20130821

REACTIONS (4)
  - Nausea [None]
  - Dizziness [None]
  - Dizziness [None]
  - Dizziness [None]
